FAERS Safety Report 17989229 (Version 1)
Quarter: 2020Q3

REPORT INFORMATION
  Report Type: Spontaneous
  Country: SE (occurrence: SE)
  Receive Date: 20200707
  Receipt Date: 20200707
  Transmission Date: 20201103
  Serious: Yes (Other)
  Sender: FDA-Public Use
  Company Number: SE-MYLANLABS-2020M1060026

PATIENT
  Sex: Female

DRUGS (1)
  1. LETROZOLE. [Suspect]
     Active Substance: LETROZOLE
     Indication: BREAST CANCER
     Dosage: UNK
     Dates: start: 20200222

REACTIONS (6)
  - Musculoskeletal stiffness [Unknown]
  - Gait disturbance [Unknown]
  - Pneumonia [Unknown]
  - Hypoaesthesia [Unknown]
  - Vision blurred [Unknown]
  - Muscle spasms [Unknown]
